FAERS Safety Report 7492036-1 (Version None)
Quarter: 2011Q2

REPORT INFORMATION
  Report Type: 
  Country: None (occurrence: None)
  Receive Date: 20110518
  Receipt Date: 20110518
  Transmission Date: 20111010
  Serious: Yes (Other)
  Sender: FDA-Public Use
  Company Number: None

PATIENT
  Sex: Female

DRUGS (1)
  1. PHENYTOIN [Suspect]
     Indication: CONVULSION
     Dosage: 2 CAPSULES DAILY PO
     Route: 048
     Dates: start: 20110223, end: 20110516

REACTIONS (12)
  - ABNORMAL SENSATION IN EYE [None]
  - PRODUCT SOLUBILITY ABNORMAL [None]
  - SOMNOLENCE [None]
  - PRODUCT DOSAGE FORM ISSUE [None]
  - DEPRESSION [None]
  - HYPOAESTHESIA [None]
  - FEAR [None]
  - PRODUCT SUBSTITUTION ISSUE [None]
  - DYSKINESIA [None]
  - BLOOD DISORDER [None]
  - CONTUSION [None]
  - HEADACHE [None]
